FAERS Safety Report 9882435 (Version 1)
Quarter: 2014Q1

REPORT INFORMATION
  Report Type: Spontaneous
  Country: US (occurrence: US)
  Receive Date: 20140207
  Receipt Date: 20140207
  Transmission Date: 20141002
  Serious: Yes (Other)
  Sender: FDA-Public Use
  Company Number: US-GLAXOSMITHKLINE-A1059941A

PATIENT
  Age: 60 Year
  Sex: Female

DRUGS (2)
  1. NICODERM PATCH [Suspect]
     Indication: SMOKING CESSATION THERAPY
     Route: 062
  2. NICODERM CQ CLEAR 21MG [Suspect]
     Indication: SMOKING CESSATION THERAPY
     Route: 062
     Dates: start: 201402, end: 20140206

REACTIONS (6)
  - Convulsion [Recovered/Resolved]
  - Paralysis [Recovered/Resolved]
  - Musculoskeletal stiffness [Recovered/Resolved]
  - Application site pruritus [Recovering/Resolving]
  - Application site pain [Recovering/Resolving]
  - Nightmare [Unknown]
